FAERS Safety Report 6424912-2 (Version None)
Quarter: 2009Q4

REPORT INFORMATION
  Report Type: 
  Country: None (occurrence: None)
  Receive Date: 20091103
  Receipt Date: 20091008
  Transmission Date: 20100525
  Serious: Yes (Hospitalization)
  Sender: FDA-Public Use
  Company Number: FR-JNJFOC-20091003661

PATIENT
  Age: 79 Year
  Sex: Female

DRUGS (11)
  1. DOXORUBICIN HCL [Suspect]
     Indication: BREAST CANCER METASTATIC
     Route: 042
  2. VOGALENE [Suspect]
     Indication: BREAST CANCER METASTATIC
     Route: 065
  3. HEMIGOXINE [Concomitant]
  4. LEVOTHYROXINE SODIUM [Concomitant]
  5. POTASSIUM CHLORIDE [Concomitant]
  6. FENOFIBRATE [Concomitant]
  7. TEMERIT [Concomitant]
  8. KARDEGIC [Concomitant]
  9. MODURETIC 5-50 [Concomitant]
  10. OROCAL D3 [Concomitant]
  11. RISEDRONATE SODIUM [Concomitant]

REACTIONS (1)
  - PRESYNCOPE [None]
